FAERS Safety Report 12651161 (Version 1)
Quarter: 2016Q3

REPORT INFORMATION
  Report Type: Spontaneous
  Country: US (occurrence: US)
  Receive Date: 20160815
  Receipt Date: 20160815
  Transmission Date: 20161109
  Serious: No
  Sender: FDA-Public Use
  Company Number: US-JAZZ-2016-US-005156

PATIENT
  Sex: Female

DRUGS (22)
  1. FOLIC ACID. [Concomitant]
     Active Substance: FOLIC ACID
  2. METHOTREXATE. [Concomitant]
     Active Substance: METHOTREXATE
  3. PILOCARPINE HCL [Concomitant]
     Active Substance: PILOCARPINE HYDROCHLORIDE
  4. PREDNISONE. [Concomitant]
     Active Substance: PREDNISONE
  5. TYLENOL WITH CODEINE [Concomitant]
     Active Substance: ACETAMINOPHEN\CODEINE PHOSPHATE
  6. ROZEREM [Concomitant]
     Active Substance: RAMELTEON
  7. XYREM [Suspect]
     Active Substance: SODIUM OXYBATE
     Dosage: 3.75 G, BID
     Route: 048
     Dates: start: 201602
  8. PLAQUENIL [Concomitant]
     Active Substance: HYDROXYCHLOROQUINE SULFATE
  9. VITAMIN D [Concomitant]
     Active Substance: CHOLECALCIFEROL
  10. RELPAX [Concomitant]
     Active Substance: ELETRIPTAN HYDROBROMIDE
  11. RASUVO [Concomitant]
     Active Substance: METHOTREXATE SODIUM
  12. IRON [Concomitant]
     Active Substance: IRON
  13. MIDODRINE HCL [Concomitant]
     Active Substance: MIDODRINE HYDROCHLORIDE
  14. XYREM [Suspect]
     Active Substance: SODIUM OXYBATE
     Indication: CATAPLEXY
     Dosage: DOSE ADJUSTMENTS
     Route: 048
  15. LYRICA [Concomitant]
     Active Substance: PREGABALIN
  16. VITAMIN B12 [Concomitant]
     Active Substance: CYANOCOBALAMIN
  17. AZITHROMYCIN ANHYDROUS. [Concomitant]
     Active Substance: AZITHROMYCIN ANHYDROUS
  18. XYREM [Suspect]
     Active Substance: SODIUM OXYBATE
     Indication: NARCOLEPSY
     Dosage: 2.25 G, BID
     Route: 048
     Dates: start: 201507, end: 201507
  19. SERTRALINE HCL [Concomitant]
     Active Substance: SERTRALINE HYDROCHLORIDE
  20. ZOLOFT [Concomitant]
     Active Substance: SERTRALINE HYDROCHLORIDE
  21. FLUDROCORTISONE [Concomitant]
     Active Substance: FLUDROCORTISONE
  22. METHYLPHENIDATE. [Concomitant]
     Active Substance: METHYLPHENIDATE

REACTIONS (1)
  - Drug ineffective [Unknown]

NARRATIVE: CASE EVENT DATE: 2016
